FAERS Safety Report 9684888 (Version 1)
Quarter: 2013Q4

REPORT INFORMATION
  Report Type: Spontaneous
  Country: DE (occurrence: DE)
  Receive Date: 20131113
  Receipt Date: 20131113
  Transmission Date: 20140711
  Serious: Yes (Hospitalization)
  Sender: FDA-Public Use
  Company Number: DE-ROCHE-1301072

PATIENT
  Sex: Female
  Weight: 75 kg

DRUGS (2)
  1. MABTHERA [Suspect]
     Indication: MIXED CONNECTIVE TISSUE DISEASE
     Route: 042
     Dates: start: 20120120
  2. LEFLUNOMID [Concomitant]
     Indication: MIXED CONNECTIVE TISSUE DISEASE
     Route: 048
     Dates: start: 2008

REACTIONS (1)
  - Cardiac myxoma [Unknown]
